FAERS Safety Report 19746742 (Version 2)
Quarter: 2021Q3

REPORT INFORMATION
  Report Type: Spontaneous
  Country: CA (occurrence: CA)
  Receive Date: 20210826
  Receipt Date: 20210901
  Transmission Date: 20211014
  Serious: Yes (Other)
  Sender: FDA-Public Use
  Company Number: CA-AUROBINDO-AUR-APL-2021-036184

PATIENT
  Age: 67 Year
  Sex: Female

DRUGS (17)
  1. VANCOMYCIN HYDROCHLORIDE INJECTION [Suspect]
     Active Substance: VANCOMYCIN HYDROCHLORIDE
     Dosage: 1 MILLIGRAM
  2. DEXAMETHASONE. [Suspect]
     Active Substance: DEXAMETHASONE
     Indication: PANOPHTHALMITIS
  3. VANCOMYCIN HYDROCHLORIDE INJECTION [Suspect]
     Active Substance: VANCOMYCIN HYDROCHLORIDE
     Indication: ALPHA HAEMOLYTIC STREPTOCOCCAL INFECTION
     Dosage: UNK
  4. MOXIFLOXACIN. [Suspect]
     Active Substance: MOXIFLOXACIN
     Indication: PANOPHTHALMITIS
  5. VANCOMYCIN HYDROCHLORIDE INJECTION [Suspect]
     Active Substance: VANCOMYCIN HYDROCHLORIDE
     Indication: PANOPHTHALMITIS
     Dosage: 1 GRAM
  6. CEFTAZIDIME. [Suspect]
     Active Substance: CEFTAZIDIME
     Indication: ALPHA HAEMOLYTIC STREPTOCOCCAL INFECTION
     Dosage: 2.25 MILLIGRAM
  7. TOBRAMYCIN AND DEXAMETHASONE [Suspect]
     Active Substance: DEXAMETHASONE\TOBRAMYCIN
     Indication: PANOPHTHALMITIS
  8. MOXIFLOXACIN. [Suspect]
     Active Substance: MOXIFLOXACIN
     Indication: ALPHA HAEMOLYTIC STREPTOCOCCAL INFECTION
     Dosage: 400 MILLIGRAM, DAILY
     Route: 065
  9. VANCOMYCIN HYDROCHLORIDE. [Suspect]
     Active Substance: VANCOMYCIN HYDROCHLORIDE
     Indication: PANOPHTHALMITIS
  10. CEFTRIAXONE. [Suspect]
     Active Substance: CEFTRIAXONE
     Indication: PANOPHTHALMITIS
  11. DEXAMETHASONE. [Suspect]
     Active Substance: DEXAMETHASONE
     Indication: ALPHA HAEMOLYTIC STREPTOCOCCAL INFECTION
     Dosage: 0.4 MG/0.1CC
     Route: 065
  12. CEFTAZIDIME. [Suspect]
     Active Substance: CEFTAZIDIME
     Indication: PANOPHTHALMITIS
  13. CEFTRIAXONE. [Suspect]
     Active Substance: CEFTRIAXONE
     Indication: ALPHA HAEMOLYTIC STREPTOCOCCAL INFECTION
     Dosage: 1 GRAM, DAILY
     Route: 042
  14. MEROPENEM. [Suspect]
     Active Substance: MEROPENEM
     Indication: ALPHA HAEMOLYTIC STREPTOCOCCAL INFECTION
     Dosage: UNK
  15. MEROPENEM. [Suspect]
     Active Substance: MEROPENEM
     Indication: PANOPHTHALMITIS
     Dosage: 2 GRAM, 3 TIMES A DAY
     Route: 042
  16. VANCOMYCIN HYDROCHLORIDE. [Suspect]
     Active Substance: VANCOMYCIN HYDROCHLORIDE
     Indication: ALPHA HAEMOLYTIC STREPTOCOCCAL INFECTION
     Dosage: UNK
     Route: 061
  17. TOBRAMYCIN AND DEXAMETHASONE [Suspect]
     Active Substance: DEXAMETHASONE\TOBRAMYCIN
     Indication: ALPHA HAEMOLYTIC STREPTOCOCCAL INFECTION
     Dosage: UNK, FOUR TIMES DAILY
     Route: 065

REACTIONS (1)
  - Drug ineffective [Unknown]
